FAERS Safety Report 7512860-6 (Version None)
Quarter: 2011Q2

REPORT INFORMATION
  Report Type: 
  Country: None (occurrence: None)
  Receive Date: 20110531
  Receipt Date: 20110526
  Transmission Date: 20111010
  Serious: Yes (Death)
  Sender: FDA-Public Use
  Company Number: JP-BRACCO-001936

PATIENT
  Age: 82 Year
  Sex: Male
  Weight: 50 kg

DRUGS (4)
  1. IOPAMIDOL [Suspect]
     Indication: DEEP VEIN THROMBOSIS
     Dosage: 2.3 ML/SEC
     Route: 042
     Dates: start: 20090403, end: 20090403
  2. IOPAMIDOL [Suspect]
     Indication: HYDRONEPHROSIS
     Dosage: 2.3 ML/SEC
     Route: 042
     Dates: start: 20090403, end: 20090403
  3. IOPAMIDOL [Suspect]
     Indication: COMPUTERISED TOMOGRAM ABDOMEN
     Dosage: 2.3 ML/SEC
     Route: 042
     Dates: start: 20090403, end: 20090403
  4. ZYRTEC [Concomitant]
     Indication: ALLERGY PROPHYLAXIS
     Route: 048
     Dates: start: 20090403, end: 20090403

REACTIONS (1)
  - ANAPHYLACTIC SHOCK [None]
